FAERS Safety Report 9336124 (Version 3)
Quarter: 2013Q3

REPORT INFORMATION
  Report Type: Spontaneous
  Country: US (occurrence: US)
  Receive Date: 20130607
  Receipt Date: 20130717
  Transmission Date: 20140515
  Serious: Yes (Hospitalization)
  Sender: FDA-Public Use
  Company Number: US-BIOGENIDEC-2013BI049987

PATIENT
  Age: 61 Year
  Sex: Female

DRUGS (10)
  1. TECFIDERA [Suspect]
     Indication: MULTIPLE SCLEROSIS
     Route: 048
     Dates: start: 20130515
  2. TECFIDERA [Suspect]
     Indication: MULTIPLE SCLEROSIS
     Route: 048
     Dates: start: 20130526, end: 20130614
  3. SYNTHROID [Concomitant]
     Route: 048
  4. CRESTOR [Concomitant]
     Route: 048
  5. INSULIN [Concomitant]
     Route: 058
  6. ASPIRIN [Concomitant]
     Route: 048
  7. VITAMIN D3 [Concomitant]
     Route: 048
  8. FOLIC ACID [Concomitant]
     Route: 048
  9. FERROUS FUMARATE [Concomitant]
     Route: 048
  10. METFORMIN HCL [Concomitant]
     Route: 048

REACTIONS (2)
  - Chest pain [Recovered/Resolved]
  - Tachycardia [Unknown]
